FAERS Safety Report 7183278-3 (Version None)
Quarter: 2010Q4

REPORT INFORMATION
  Report Type: 
  Country: None (occurrence: None)
  Receive Date: 20101222
  Receipt Date: 20100831
  Transmission Date: 20110411
  Serious: No
  Sender: FDA-Public Use
  Company Number: A0864032A

PATIENT
  Age: 48 Year
  Sex: Female

DRUGS (4)
  1. FLONASE [Suspect]
     Dosage: 1PUFF PER DAY
     Route: 045
     Dates: start: 20040801
  2. CLONOPIN [Concomitant]
  3. TRIAMCINOLONE [Concomitant]
  4. VIVELLE PATCHES [Concomitant]

REACTIONS (3)
  - DYSGEUSIA [None]
  - NASAL DISCOMFORT [None]
  - PRODUCT QUALITY ISSUE [None]
